FAERS Safety Report 18541586 (Version 2)
Quarter: 2020Q4

REPORT INFORMATION
  Report Type: Spontaneous
  Country: ES (occurrence: ES)
  Receive Date: 20201124
  Receipt Date: 20201214
  Transmission Date: 20210114
  Serious: Yes (Death, Other)
  Sender: FDA-Public Use
  Company Number: ES-ASTRAZENECA-2020SF54001

PATIENT
  Age: 46 Year
  Sex: Female

DRUGS (20)
  1. FULVESTRANT. [Suspect]
     Active Substance: FULVESTRANT
     Dosage: CYCLIC (10TH CYCLE)
     Route: 030
     Dates: start: 20190705
  2. METFORMIN [Concomitant]
     Active Substance: METFORMIN HYDROCHLORIDE
     Dates: start: 201904
  3. ZOLEDRONIC ACID. [Suspect]
     Active Substance: ZOLEDRONIC ACID
     Route: 065
     Dates: start: 20180831
  4. FULVESTRANT. [Suspect]
     Active Substance: FULVESTRANT
     Dosage: CYCLIC (7TH CYCLE)
     Route: 030
     Dates: start: 20190215
  5. PALBOCICLIB [Suspect]
     Active Substance: PALBOCICLIB
     Dosage: CYCLIC (12TH CYCLE)
     Route: 048
     Dates: start: 20190705
  6. TAXOL [Concomitant]
     Active Substance: PACLITAXEL
     Dosage: CYCLE DAY +15
     Dates: start: 20191227
  7. FULVESTRANT. [Suspect]
     Active Substance: FULVESTRANT
     Dosage: CYCLIC (4TH CYCLE)
     Route: 030
     Dates: start: 20181123
  8. PALBOCICLIB [Suspect]
     Active Substance: PALBOCICLIB
     Route: 048
  9. FULVESTRANT. [Suspect]
     Active Substance: FULVESTRANT
     Dosage: CYCLIC (12TH CYCLE)
     Route: 030
     Dates: start: 20190920
  10. FULVESTRANT. [Suspect]
     Active Substance: FULVESTRANT
     Dosage: CYCLIC (14TH CYCLE)
     Route: 030
     Dates: start: 20190920
  11. PALBOCICLIB [Suspect]
     Active Substance: PALBOCICLIB
     Dosage: CYCLIC (10TH CYCLE)
     Route: 048
     Dates: start: 20190510
  12. PALBOCICLIB [Suspect]
     Active Substance: PALBOCICLIB
     Dosage: CYCLIC (14TH CYCLE)
     Route: 048
     Dates: start: 20190920
  13. TAXOL [Concomitant]
     Active Substance: PACLITAXEL
     Dosage: CYCLE DAY +1
     Dates: start: 20191018
  14. TAXOL [Concomitant]
     Active Substance: PACLITAXEL
     Dosage: CYCLE DAY +15
     Dates: start: 20191118
  15. FULVESTRANT. [Suspect]
     Active Substance: FULVESTRANT
     Dosage: CYCLIC
     Route: 030
     Dates: start: 20190510
  16. PALBOCICLIB [Suspect]
     Active Substance: PALBOCICLIB
     Dosage: CYCLIC (4TH CYCLE)
     Route: 048
     Dates: start: 20181123
  17. FULVESTRANT. [Suspect]
     Active Substance: FULVESTRANT
     Dosage: CYCLIC (1ST CYCLE)
     Route: 030
     Dates: start: 20180831
  18. PALBOCICLIB [Suspect]
     Active Substance: PALBOCICLIB
     Dosage: CYCLIC (1ST CYCLE)
     Route: 048
     Dates: start: 20180831
  19. PALBOCICLIB [Suspect]
     Active Substance: PALBOCICLIB
     Dosage: CYCLIC (7TH CYCLE)
     Route: 048
     Dates: start: 20190215
  20. TAXOL [Concomitant]
     Active Substance: PACLITAXEL
     Dosage: CYCLE DAY +1
     Dates: start: 20200221

REACTIONS (11)
  - Seizure [Unknown]
  - Asthenia [Unknown]
  - Anaemia [Unknown]
  - Metastases to kidney [Unknown]
  - Death [Fatal]
  - Blood glucose increased [Unknown]
  - Skin toxicity [Unknown]
  - Metastases to retroperitoneum [Unknown]
  - Metastases to liver [Unknown]
  - Malignant neoplasm progression [Unknown]
  - Metastases to lung [Unknown]

NARRATIVE: CASE EVENT DATE: 20190215
